FAERS Safety Report 4719783-6 (Version None)
Quarter: 2005Q3

REPORT INFORMATION
  Report Type: 
  Country: None (occurrence: None)
  Receive Date: 20050721
  Receipt Date: 20041101
  Transmission Date: 20060218
  Serious: No
  Sender: FDA-Public Use
  Company Number: US-GLAXOSMITHKLINE-A0532078A

PATIENT
  Age: 70 Year
  Sex: Female

DRUGS (9)
  1. AVANDIA [Suspect]
     Dosage: 8MG PER DAY
     Route: 048
  2. GLUCOPHAGE [Suspect]
     Indication: DRUG USE FOR UNKNOWN INDICATION
     Route: 048
  3. AMARYL [Concomitant]
  4. ATENOLOL [Concomitant]
  5. TRIAMTERENE [Concomitant]
  6. VASOTEC RPD [Concomitant]
  7. VALIUM [Concomitant]
  8. LOPID [Concomitant]
  9. ALLOPURINOL [Concomitant]

REACTIONS (1)
  - DIARRHOEA [None]
